FAERS Safety Report 14992387 (Version 1)
Quarter: 2018Q2

REPORT INFORMATION
  Report Type: Spontaneous
  Country: DE (occurrence: DE)
  Receive Date: 20180609
  Receipt Date: 20180609
  Transmission Date: 20180711
  Serious: Yes (Hospitalization)
  Sender: FDA-Public Use
  Company Number: DE-TEVA-2018-DE-903392

PATIENT
  Age: 93 Year
  Sex: Female

DRUGS (9)
  1. DOXYLAMIN [Interacting]
     Active Substance: DOXYLAMINE
     Dosage: 0-0-0-1
  2. AMLODIPIN [Concomitant]
     Active Substance: AMLODIPINE BESYLATE
     Dosage: 10 MG, 0.5-0-0-0
  3. METAMIZOL [Interacting]
     Active Substance: METAMIZOLE SODIUM
     Dosage: 40-40-40-40, TROPFEN
  4. TORASEMID [Concomitant]
     Active Substance: TORSEMIDE
     Dosage: 20 MG, 1-0.5-0-0
  5. CORTISON [Suspect]
     Active Substance: CORTISONE ACETATE
     Dosage: 20 MG
  6. METOPROLOL. [Concomitant]
     Active Substance: METOPROLOL
     Dosage: 95 MG, 0.5-0-0.5-0
  7. DABIGATRAN [Concomitant]
     Active Substance: DABIGATRAN
     Dosage: 110 MG, 1-0-0-1
  8. TRAMADOL. [Suspect]
     Active Substance: TRAMADOL
     Dosage: 100 MG, 1-0-1-0
  9. PANTOPRAZOL [Concomitant]
     Active Substance: PANTOPRAZOLE SODIUM
     Dosage: 40 MG, 1-0-0-0

REACTIONS (6)
  - Back pain [Unknown]
  - Nausea [Unknown]
  - Product used for unknown indication [Unknown]
  - Labelled drug-drug interaction medication error [Unknown]
  - Drug prescribing error [Unknown]
  - Condition aggravated [Unknown]
